FAERS Safety Report 20161010 (Version 1)
Quarter: 2021Q4

REPORT INFORMATION
  Report Type: Spontaneous
  Country: US (occurrence: None)
  Receive Date: 20211207
  Receipt Date: 20211207
  Transmission Date: 20220303
  Serious: Yes (Hospitalization)
  Sender: FDA-Public Use
  Company Number: None

PATIENT
  Age: 63 Year
  Sex: Female
  Weight: 55.3 kg

DRUGS (1)
  1. RISEDRONIC ACID [Suspect]
     Active Substance: RISEDRONIC ACID
     Dosage: OTHER FREQUENCY : MONTHLY;?
     Route: 048

REACTIONS (1)
  - Pain in extremity [None]

NARRATIVE: CASE EVENT DATE: 20211201
